FAERS Safety Report 16121775 (Version 1)
Quarter: 2019Q2

REPORT INFORMATION
  Report Type: Spontaneous
  Country: US (occurrence: US)
  Receive Date: 20190326
  Receipt Date: 20190326
  Transmission Date: 20190711
  Serious: No
  Sender: FDA-Public Use
  Company Number: None

PATIENT
  Age: 40 Year
  Sex: Female
  Weight: 81.65 kg

DRUGS (1)
  1. MIRENA [Suspect]
     Active Substance: LEVONORGESTREL

REACTIONS (5)
  - Arthralgia [None]
  - Musculoskeletal discomfort [None]
  - Myalgia [None]
  - Limb discomfort [None]
  - Musculoskeletal stiffness [None]

NARRATIVE: CASE EVENT DATE: 20190323
